FAERS Safety Report 8933878 (Version 2)
Quarter: 2021Q2

REPORT INFORMATION
  Report Type: Other
  Country: CA (occurrence: CA)
  Receive Date: 20121129
  Receipt Date: 20210503
  Transmission Date: 20210717
  Serious: Yes (Other)
  Sender: FDA-Public Use
  Company Number: CA-ROCHE-1161557

PATIENT
  Sex: Female

DRUGS (19)
  1. RITUXIMAB. [Suspect]
     Active Substance: RITUXIMAB
     Indication: RHEUMATOID ARTHRITIS
     Route: 042
     Dates: start: 20100920, end: 20120229
  2. NEXIUM [Concomitant]
     Active Substance: ESOMEPRAZOLE MAGNESIUM
  3. METHYLPREDNISOLONE. [Concomitant]
     Active Substance: METHYLPREDNISOLONE
     Indication: PREMEDICATION
     Route: 042
     Dates: start: 20100920, end: 20120229
  4. METHOTREXATE. [Concomitant]
     Active Substance: METHOTREXATE
  5. PLAQUENIL [Concomitant]
     Active Substance: HYDROXYCHLOROQUINE SULFATE
  6. DIAMICRON [Concomitant]
     Active Substance: GLICLAZIDE
  7. FOLIC ACID. [Concomitant]
     Active Substance: FOLIC ACID
  8. TRIAZIDE [HYDROCHLOROTHIAZIDE;TRIAMTERENE] [Concomitant]
  9. DIPHENHYDRAMINE HCL [Concomitant]
     Active Substance: DIPHENHYDRAMINE HYDROCHLORIDE
     Indication: PREMEDICATION
     Route: 048
     Dates: start: 20100920, end: 20120229
  10. VITAMIN C [Concomitant]
     Active Substance: ASCORBIC ACID
  11. ZYLOPRIM [Concomitant]
     Active Substance: ALLOPURINOL
  12. ACTEMRA [Suspect]
     Active Substance: TOCILIZUMAB
     Indication: RHEUMATOID ARTHRITIS
     Route: 058
     Dates: start: 20200127
  13. ACETAMINOPHEN. [Concomitant]
     Active Substance: ACETAMINOPHEN
     Indication: PREMEDICATION
     Route: 048
     Dates: start: 20100920, end: 20120229
  14. LEUCOVORIN. [Concomitant]
     Active Substance: LEUCOVORIN
  15. NOVORAPID [Concomitant]
     Active Substance: INSULIN ASPART
  16. CALCIUM [Concomitant]
     Active Substance: CALCIUM
  17. SYNTHROID [Concomitant]
     Active Substance: LEVOTHYROXINE SODIUM
  18. METHYLPREDNISOLONE. [Concomitant]
     Active Substance: METHYLPREDNISOLONE
     Route: 042
     Dates: start: 20120229
  19. VENTOLIN [Concomitant]
     Active Substance: ALBUTEROL SULFATE

REACTIONS (7)
  - Renal disorder [Unknown]
  - Back pain [Unknown]
  - Blood creatinine increased [Unknown]
  - Asthenia [Unknown]
  - Decreased appetite [Unknown]
  - Dehydration [Unknown]
  - Fatigue [Unknown]

NARRATIVE: CASE EVENT DATE: 2012
